FAERS Safety Report 23172699 (Version 4)
Quarter: 2023Q4

REPORT INFORMATION
  Report Type: Spontaneous
  Country: JP (occurrence: JP)
  Receive Date: 20231110
  Receipt Date: 20231227
  Transmission Date: 20240110
  Serious: Yes (Hospitalization)
  Sender: FDA-Public Use
  Company Number: JP-ELI_LILLY_AND_COMPANY-JP202311001033

PATIENT
  Age: 75 Year
  Sex: Male

DRUGS (2)
  1. OLUMIANT [Suspect]
     Active Substance: BARICITINIB
     Indication: Dermatitis atopic
     Dosage: 4 MG, DAILY
     Route: 048
     Dates: start: 2021
  2. PROTOPIC [Concomitant]
     Active Substance: TACROLIMUS
     Indication: Dermatitis atopic
     Route: 062

REACTIONS (3)
  - Bile duct cancer [Not Recovered/Not Resolved]
  - Jaundice cholestatic [Unknown]
  - Gallbladder neoplasm [Unknown]

NARRATIVE: CASE EVENT DATE: 20230501
